FAERS Safety Report 4953337-1 (Version None)
Quarter: 2006Q1

REPORT INFORMATION
  Report Type: 
  Country: None (occurrence: None)
  Receive Date: 20060324
  Receipt Date: 20060320
  Transmission Date: 20060701
  Serious: Yes (Other)
  Sender: FDA-Public Use
  Company Number: JP-AVENTIS-200610917JP

PATIENT
  Age: 57 Year
  Sex: Male

DRUGS (1)
  1. KETEK [Suspect]
     Route: 048
     Dates: start: 20040701, end: 20040801

REACTIONS (2)
  - DRUG ERUPTION [None]
  - LIVER DISORDER [None]
